FAERS Safety Report 17848340 (Version 1)
Quarter: 2020Q2

REPORT INFORMATION
  Report Type: Report from Study
  Country: None (occurrence: US)
  Receive Date: 20200602
  Receipt Date: 20200602
  Transmission Date: 20200714
  Serious: Yes (Other)
  Sender: FDA-Public Use
  Company Number: US-ABBVIE-20K-163-3425570-00

PATIENT
  Sex: Male

DRUGS (3)
  1. HUMIRA [Suspect]
     Active Substance: ADALIMUMAB
     Indication: COLITIS ULCERATIVE
  2. HUMIRA [Suspect]
     Active Substance: ADALIMUMAB
     Indication: RHEUMATOID ARTHRITIS
  3. HUMIRA [Suspect]
     Active Substance: ADALIMUMAB
     Indication: ANKYLOSING SPONDYLITIS
     Dosage: CITRATE FREE
     Route: 058

REACTIONS (14)
  - Intervertebral disc protrusion [Recovering/Resolving]
  - Procedural pain [Recovering/Resolving]
  - Hypoaesthesia [Unknown]
  - Road traffic accident [Recovering/Resolving]
  - Back pain [Recovering/Resolving]
  - Skin indentation [Not Recovered/Not Resolved]
  - Spinal cord oedema [Unknown]
  - Paraesthesia [Unknown]
  - Suicidal ideation [Unknown]
  - Peripheral swelling [Not Recovered/Not Resolved]
  - Erythema [Not Recovered/Not Resolved]
  - Immunodeficiency [Not Recovered/Not Resolved]
  - Thinking abnormal [Unknown]
  - Depression [Recovering/Resolving]
